FAERS Safety Report 6768705-5 (Version None)
Quarter: 2010Q2

REPORT INFORMATION
  Report Type: 
  Country: None (occurrence: None)
  Receive Date: 20100614
  Receipt Date: 20100611
  Transmission Date: 20101027
  Serious: Yes (Disabling, Other)
  Sender: FDA-Public Use
  Company Number: DE-WYE-G06007810

PATIENT
  Age: 56 Year
  Sex: Male
  Weight: 66 kg

DRUGS (1)
  1. RAPAMUNE [Suspect]
     Indication: RENAL TRANSPLANT
     Route: 048
     Dates: start: 20070410, end: 20090324

REACTIONS (4)
  - AMYOTROPHY [None]
  - BONE PAIN [None]
  - POLYNEUROPATHY [None]
  - QUADRIPLEGIA [None]
